FAERS Safety Report 26213100 (Version 1)
Quarter: 2025Q4

REPORT INFORMATION
  Report Type: Spontaneous
  Country: TW (occurrence: TW)
  Receive Date: 20251230
  Receipt Date: 20251230
  Transmission Date: 20260118
  Serious: Yes (Death, Other)
  Sender: AMGEN
  Company Number: TW-AMGEN-TWNSP2025255780

PATIENT

DRUGS (2)
  1. BEVACIZUMAB [Suspect]
     Active Substance: BEVACIZUMAB
     Indication: Hepatocellular carcinoma
     Dosage: UNK
     Route: 065
  2. ATEZOLIZUMAB [Concomitant]
     Active Substance: ATEZOLIZUMAB
     Indication: Hepatocellular carcinoma
     Dosage: UNK
     Route: 065

REACTIONS (13)
  - Pancreatic carcinoma [Fatal]
  - Hepatic failure [Fatal]
  - Oesophageal varices haemorrhage [Fatal]
  - Death [Fatal]
  - Hepatocellular carcinoma [Unknown]
  - Gastrointestinal toxicity [Unknown]
  - Gastric ulcer [Unknown]
  - Duodenal ulcer [Unknown]
  - Haemostasis [Unknown]
  - Lower gastrointestinal haemorrhage [Unknown]
  - Portal hypertension [Unknown]
  - Therapy partial responder [Unknown]
  - Off label use [Unknown]
